FAERS Safety Report 22139187 (Version 1)
Quarter: 2023Q1

REPORT INFORMATION
  Report Type: Spontaneous
  Country: US (occurrence: US)
  Receive Date: 20230327
  Receipt Date: 20230327
  Transmission Date: 20230417
  Serious: Yes (Other)
  Sender: FDA-Public Use
  Company Number: US-UCBSA-2023014931

PATIENT
  Sex: Male

DRUGS (1)
  1. CIMZIA [Suspect]
     Active Substance: CERTOLIZUMAB PEGOL
     Indication: Ankylosing spondylitis
     Dosage: 2 MILLILITER/ 400MG, EV 4 WEEKS
     Route: 058
     Dates: start: 20220628

REACTIONS (4)
  - Feeling abnormal [Unknown]
  - Limb discomfort [Unknown]
  - Fatigue [Unknown]
  - Nausea [Unknown]
